FAERS Safety Report 13010851 (Version 1)
Quarter: 2016Q4

REPORT INFORMATION
  Report Type: Spontaneous
  Country: US (occurrence: US)
  Receive Date: 20161208
  Receipt Date: 20161208
  Transmission Date: 20170207
  Serious: Yes (Hospitalization, Other)
  Sender: FDA-Public Use
  Company Number: US-MYLANLABS-2016M1054070

PATIENT

DRUGS (32)
  1. PREDNISONE. [Suspect]
     Active Substance: PREDNISONE
     Indication: PYODERMA GANGRENOSUM
     Dosage: INITIAL DOSE NOT STATED; COULD NOT TAPER BELOW 20 MG PER DAY; INCREASED TO
     Route: 065
  2. PREDNISONE. [Suspect]
     Active Substance: PREDNISONE
     Dosage: FURTHER INCREASED TO 60 MG DAILY; FOLLOWED BY
     Route: 065
  3. ADALIMUMAB [Suspect]
     Active Substance: ADALIMUMAB
     Dosage: FURTHER INCREASED TO 40 MG WEEKLY
     Route: 058
  4. CICLOSPORIN [Suspect]
     Active Substance: CYCLOSPORINE
     Dosage: RESTARTED AT A DOSE OF 100 MG IN THE MORNING AND 125 MG IN THE EVENING
     Route: 065
  5. DESONIDE. [Concomitant]
     Active Substance: DESONIDE
     Indication: GRANULOMATOUS DERMATITIS
     Route: 061
  6. ISOTRETINOIN [Concomitant]
     Active Substance: ISOTRETINOIN
     Indication: GRANULOMATOUS DERMATITIS
     Route: 048
  7. PREDNISONE. [Suspect]
     Active Substance: PREDNISONE
     Dosage: INCREASED TO 40 MG DAILY; FURTHER INCREASED TO
     Route: 065
  8. DAPSONE. [Suspect]
     Active Substance: DAPSONE
     Indication: GRANULOMATOUS DERMATITIS
     Route: 065
  9. TACROLIMUS. [Concomitant]
     Active Substance: TACROLIMUS
     Indication: PYODERMA GANGRENOSUM
     Route: 061
  10. TRAMADOL. [Concomitant]
     Active Substance: TRAMADOL
     Indication: PAIN
     Route: 065
  11. ADZOPIP [Concomitant]
     Indication: KLEBSIELLA INFECTION
     Route: 065
  12. FLUCONAZOLE. [Concomitant]
     Active Substance: FLUCONAZOLE
     Indication: FOLLICULITIS
     Route: 048
  13. GENTAMICIN. [Concomitant]
     Active Substance: GENTAMICIN
     Indication: KLEBSIELLA INFECTION
     Route: 065
  14. METHOTREXATE. [Concomitant]
     Active Substance: METHOTREXATE
     Indication: CROHN^S DISEASE
     Route: 065
  15. ADALIMUMAB [Suspect]
     Active Substance: ADALIMUMAB
     Indication: PYODERMA GANGRENOSUM
     Dosage: INCREASED TO WEEKLY DOSING; FURTHER INCREASED TO
     Route: 065
  16. METRONIDAZOLE. [Concomitant]
     Active Substance: METRONIDAZOLE
     Indication: GRANULOMATOUS DERMATITIS
     Route: 061
  17. CEFTRIAXONE. [Concomitant]
     Active Substance: CEFTRIAXONE
     Indication: KLEBSIELLA INFECTION
     Dosage: FOR 10 DAYS
     Route: 065
  18. ADALIMUMAB [Suspect]
     Active Substance: ADALIMUMAB
     Indication: CROHN^S DISEASE
     Dosage: INITIAL DOSE NOT STATED; INCREASED TO
     Route: 065
  19. CERTOLIZUMAB PEGOL [Suspect]
     Active Substance: CERTOLIZUMAB PEGOL
     Indication: CROHN^S DISEASE
     Route: 065
  20. INFLIXIMAB [Suspect]
     Active Substance: INFLIXIMAB
     Indication: CROHN^S DISEASE
     Dosage: INITIAL DOSE NOT STATED; CHANGED TO
     Route: 065
  21. INFLIXIMAB [Suspect]
     Active Substance: INFLIXIMAB
     Dosage: CHANGED TO EVERY 4 WEEKS AT 10 MG/KG; FOLLOWED BY
     Route: 050
  22. INFLIXIMAB [Suspect]
     Active Substance: INFLIXIMAB
     Dosage: FOLLOWED BY 15 MG/KG
     Route: 050
  23. COTRIMOXAZOLE [Concomitant]
     Active Substance: SULFAMETHOXAZOLE\TRIMETHOPRIM
     Indication: PYODERMA GANGRENOSUM
     Route: 065
  24. TRIAMCINOLONE [Concomitant]
     Active Substance: TRIAMCINOLONE
     Indication: GRANULOMATOUS DERMATITIS
     Route: 026
  25. VANCOMYCIN [Concomitant]
     Active Substance: VANCOMYCIN
     Indication: KLEBSIELLA INFECTION
     Route: 065
  26. PREDNISONE. [Suspect]
     Active Substance: PREDNISONE
     Dosage: FOLLOWED BY DOSE TAPER; BUT COULD NOT REDUCE IT BELOW 10 MG
     Route: 065
  27. MINOCYCLINE [Concomitant]
     Active Substance: MINOCYCLINE\MINOCYCLINE HYDROCHLORIDE
     Indication: PYODERMA GANGRENOSUM
     Route: 065
  28. MEDROL [Concomitant]
     Active Substance: METHYLPREDNISOLONE
     Indication: KLEBSIELLA INFECTION
     Dosage: 2-60 MG/DAY DIVIDED Q 6-24 HOUR
     Route: 048
  29. HYDROCORTISONE. [Concomitant]
     Active Substance: HYDROCORTISONE
     Indication: ADRENAL INSUFFICIENCY
     Route: 048
  30. CICLOSPORIN [Suspect]
     Active Substance: CYCLOSPORINE
     Indication: PYODERMA GANGRENOSUM
     Dosage: INITIAL DOSE NOT STATED; DRUG WITHDRAWN DUE TO FRUSTRATION AND THEN RESTARTED
     Route: 065
  31. INFLIXIMAB [Suspect]
     Active Substance: INFLIXIMAB
     Dosage: FOLLOWED BY EVERY 6 WEEKS AT 10 MG/KG; FOLLOWED BY
     Route: 050
  32. IMMUNE GLOBULIN [Concomitant]
     Active Substance: HUMAN IMMUNOGLOBULIN G
     Indication: KLEBSIELLA INFECTION
     Dosage: 3 DOSES OF 0.4 MG/KG
     Route: 042

REACTIONS (3)
  - Spinal fracture [Unknown]
  - Mycobacterium marinum infection [Recovered/Resolved]
  - Methaemoglobinaemia [Unknown]
